FAERS Safety Report 10949192 (Version 1)
Quarter: 2015Q1

REPORT INFORMATION
  Report Type: Spontaneous
  Country: US (occurrence: US)
  Receive Date: 20150324
  Receipt Date: 20150324
  Transmission Date: 20150721
  Serious: Yes (Hospitalization, Other)
  Sender: FDA-Public Use
  Company Number: US-BAUSCH-BL-2015-009521

PATIENT
  Sex: Female

DRUGS (2)
  1. XENAZINE [Suspect]
     Active Substance: TETRABENAZINE
     Indication: BALLISMUS
     Route: 048
     Dates: start: 20110506
  2. XENAZINE [Suspect]
     Active Substance: TETRABENAZINE
     Indication: CHOREA

REACTIONS (2)
  - Hospitalisation [Unknown]
  - Intentional product use issue [Unknown]
